FAERS Safety Report 15714167 (Version 1)
Quarter: 2018Q4

REPORT INFORMATION
  Report Type: Spontaneous
  Country: US (occurrence: US)
  Receive Date: 20181212
  Receipt Date: 20181212
  Transmission Date: 20190205
  Serious: Yes (Hospitalization)
  Sender: FDA-Public Use
  Company Number: PHEH2018US052027

PATIENT
  Age: 45 Year
  Sex: Male

DRUGS (1)
  1. AFINITOR [Suspect]
     Active Substance: EVEROLIMUS
     Indication: CARCINOID SYNDROME
     Dosage: 5 MG, QD
     Route: 048

REACTIONS (5)
  - Haemorrhoids [Unknown]
  - Bowel movement irregularity [Unknown]
  - Constipation [Unknown]
  - Incorrect dose administered [Unknown]
  - Bronchitis [Unknown]

NARRATIVE: CASE EVENT DATE: 201811
